FAERS Safety Report 13669374 (Version 1)
Quarter: 2017Q2

REPORT INFORMATION
  Report Type: Report from Study
  Country: US (occurrence: US)
  Receive Date: 20170620
  Receipt Date: 20170620
  Transmission Date: 20170830
  Serious: No
  Sender: FDA-Public Use
  Company Number: PHEH2017US018564

PATIENT
  Sex: Female

DRUGS (1)
  1. ENTRESTO [Suspect]
     Active Substance: SACUBITRIL\VALSARTAN
     Dosage: 24/26MG (24MG SACUBIRTIL/26MG VALSARTAN BID)
     Route: 048

REACTIONS (2)
  - Anxiety [Unknown]
  - Nervousness [Unknown]
